FAERS Safety Report 19508929 (Version 3)
Quarter: 2021Q4

REPORT INFORMATION
  Report Type: Spontaneous
  Country: JP (occurrence: JP)
  Receive Date: 20210709
  Receipt Date: 20211203
  Transmission Date: 20220303
  Serious: Yes (Hospitalization, Other)
  Sender: FDA-Public Use
  Company Number: JP-GSKNCCC-CASE-01246728_AE-46450

PATIENT
  Age: 79 Year
  Sex: Female

DRUGS (1)
  1. PAXIL CR [Suspect]
     Active Substance: PAROXETINE HYDROCHLORIDE
     Indication: Psychiatric symptom
     Dosage: 25 MILLIGRAM, QD
     Route: 065
     Dates: end: 20210622

REACTIONS (6)
  - Malignant neoplasm progression [Unknown]
  - Drug dose titration not performed [Unknown]
  - Aggression [Unknown]
  - Yawning [Not Recovered/Not Resolved]
  - Restlessness [Unknown]
  - Withdrawal syndrome [Unknown]
